FAERS Safety Report 5513757-3 (Version None)
Quarter: 2007Q4

REPORT INFORMATION
  Report Type: 
  Country: None (occurrence: None)
  Receive Date: 20071113
  Receipt Date: 20071104
  Transmission Date: 20080405
  Serious: Yes (Hospitalization, Other)
  Sender: FDA-Public Use
  Company Number: PHEH2007US10513

PATIENT
  Age: 54 Year
  Sex: Female

DRUGS (14)
  1. AREDIA [Suspect]
     Dosage: UNK, UNK
     Dates: start: 20060613
  2. DILAUDID [Concomitant]
  3. FEXOFENADINE [Concomitant]
     Dosage: 180 MG, BID
     Route: 048
  4. ZOMETA [Suspect]
     Indication: METASTASES TO BONE
     Dosage: 4 MG, UNK
     Dates: start: 20070801
  5. ZOMETA [Suspect]
     Dosage: 4 MG, UNK
  6. LEVOTHYROXINE SODIUM [Concomitant]
     Indication: AUTOIMMUNE THYROIDITIS
     Dosage: 75 MCG DAILY
  7. RITALIN [Concomitant]
     Indication: NARCOLEPSY
     Dosage: 40 MG, QID
  8. FEMARA [Suspect]
     Dosage: 2.5 MG, QD
     Route: 048
     Dates: start: 20041001, end: 20070222
  9. NEURONTIN [Concomitant]
     Dosage: 300 MG, TID
  10. TUMS [Concomitant]
     Indication: PROPHYLAXIS
     Dosage: 2 TABS QID
  11. SODIUM FLUORIDE [Concomitant]
     Indication: DRY MOUTH
     Dosage: 1.1% BRUSH WITH 2X A DAY
     Route: 048
  12. SORBITOL [Concomitant]
     Indication: CONSTIPATION
     Dosage: 5-15 ML PRN QD
  13. ROBAXIN [Concomitant]
     Dosage: 500MG 1-2 TABS QID PRN
  14. MYLICON [Concomitant]
     Indication: FLATULENCE
     Dosage: 1-2 TABS QID PRN

REACTIONS (24)
  - ANGER [None]
  - ARTHRALGIA [None]
  - AUTONOMIC NEUROPATHY [None]
  - CHEST PAIN [None]
  - CONSTIPATION [None]
  - CRYING [None]
  - DRY EYE [None]
  - DRY MOUTH [None]
  - DYSPNOEA [None]
  - FLATULENCE [None]
  - GAIT DISTURBANCE [None]
  - HAEMORRHAGE [None]
  - HYPERSENSITIVITY [None]
  - MALIGNANT NEOPLASM PROGRESSION [None]
  - MUSCLE SPASMS [None]
  - PAIN [None]
  - PNEUMONIA [None]
  - PYREXIA [None]
  - RED BLOOD CELL SEDIMENTATION RATE INCREASED [None]
  - SWELLING [None]
  - SYSTEMIC LUPUS ERYTHEMATOSUS [None]
  - TETANY [None]
  - VISION BLURRED [None]
  - WOUND [None]
